FAERS Safety Report 15983348 (Version 1)
Quarter: 2019Q1

REPORT INFORMATION
  Report Type: Spontaneous
  Country: US (occurrence: US)
  Receive Date: 20190218
  Receipt Date: 20190218
  Transmission Date: 20190418
  Serious: Yes (Life-Threatening)
  Sender: FDA-Public Use
  Company Number: None

PATIENT
  Age: 27 Year
  Sex: Female
  Weight: 61.23 kg

DRUGS (1)
  1. SKYLA [Suspect]
     Active Substance: LEVONORGESTREL
     Dates: start: 20181115

REACTIONS (5)
  - Menstrual disorder [None]
  - Frustration tolerance decreased [None]
  - Medical device pain [None]
  - Pregnancy with contraceptive device [None]
  - Ectopic pregnancy [None]

NARRATIVE: CASE EVENT DATE: 20190214
